FAERS Safety Report 14991873 (Version 1)
Quarter: 2018Q2

REPORT INFORMATION
  Report Type: Spontaneous
  Country: US (occurrence: US)
  Receive Date: 20180608
  Receipt Date: 20180608
  Transmission Date: 20180711
  Serious: Yes (Death)
  Sender: FDA-Public Use
  Company Number: US-ACTELION-A-US2018-173150

PATIENT
  Age: 7 Year
  Sex: Male

DRUGS (15)
  1. FENTANYL. [Concomitant]
     Active Substance: FENTANYL
     Indication: SEDATION
     Route: 042
  2. VANCOMYCIN [Concomitant]
     Active Substance: VANCOMYCIN
     Dosage: 800 MG, Q8HRS
     Route: 042
     Dates: start: 20171111
  3. EPINEPHRINE. [Concomitant]
     Active Substance: EPINEPHRINE
     Dosage: TITRATED TO RESPONSE
     Dates: start: 20171111
  4. MILRINONE [Concomitant]
     Active Substance: MILRINONE
     Dosage: 0.5 MCG/KG, PER MIN
     Dates: start: 20171111
  5. VASOPRESSIN AND ANALOGUES [Concomitant]
     Active Substance: VASOPRESSIN
     Dosage: TITRATED TO RESPONSE
     Route: 042
     Dates: start: 20171111
  6. FUROSEMIDE. [Concomitant]
     Active Substance: FUROSEMIDE
     Dosage: 10 MG, Q8
     Route: 042
  7. SILDENAFIL. [Concomitant]
     Active Substance: SILDENAFIL
     Dosage: 10 MG, Q8
     Route: 042
     Dates: start: 20171111
  8. TRACLEER [Suspect]
     Active Substance: BOSENTAN
     Dosage: 15 MG, BID
     Route: 048
     Dates: start: 20171026
  9. TRACLEER [Suspect]
     Active Substance: BOSENTAN
     Indication: PULMONARY ARTERIAL HYPERTENSION
     Dosage: 62.5 MG, BID
     Route: 048
     Dates: start: 20171029, end: 20171113
  10. MIDAZOLAM [Concomitant]
     Active Substance: MIDAZOLAM HYDROCHLORIDE
     Indication: SEDATION
     Route: 042
  11. CEFTRIAXONE. [Concomitant]
     Active Substance: CEFTRIAXONE
     Dosage: 1 G, Q24
     Route: 042
     Dates: start: 20171111
  12. SENNA [Concomitant]
     Active Substance: SENNA LEAF\SENNOSIDES\SENNOSIDES A AND B
     Dosage: 4.4 MG, QHS
     Dates: start: 20171111
  13. TRACLEER [Suspect]
     Active Substance: BOSENTAN
     Dosage: 31.25 MG, UNK
     Route: 048
     Dates: start: 20171111
  14. TRACLEER [Suspect]
     Active Substance: BOSENTAN
     Dosage: 31 MG, BID
     Route: 048
     Dates: start: 20171027
  15. VENTAVIS [Concomitant]
     Active Substance: ILOPROST
     Indication: PULMONARY ARTERIAL HYPERTENSION

REACTIONS (3)
  - Aspartate aminotransferase increased [Not Recovered/Not Resolved]
  - Cardiogenic shock [Fatal]
  - Alanine aminotransferase increased [Not Recovered/Not Resolved]

NARRATIVE: CASE EVENT DATE: 20171111
